FAERS Safety Report 12409431 (Version 1)
Quarter: 2016Q2

REPORT INFORMATION
  Report Type: Report from Study
  Country: US (occurrence: US)
  Receive Date: 20160526
  Receipt Date: 20160526
  Transmission Date: 20160815
  Serious: Yes (Other)
  Sender: FDA-Public Use
  Company Number: US-ABBVIE-16K-163-1626432-00

PATIENT
  Sex: Female
  Weight: 77.18 kg

DRUGS (3)
  1. PROTONIX [Concomitant]
     Active Substance: PANTOPRAZOLE SODIUM
     Indication: PRODUCT USED FOR UNKNOWN INDICATION
  2. SYNTHROID [Concomitant]
     Active Substance: LEVOTHYROXINE SODIUM
     Indication: PRODUCT USED FOR UNKNOWN INDICATION
  3. HUMIRA [Suspect]
     Active Substance: ADALIMUMAB
     Indication: RHEUMATOID ARTHRITIS
     Route: 058
     Dates: start: 2005, end: 2012

REACTIONS (5)
  - Vaginal haemorrhage [Recovered/Resolved]
  - Urticaria [Recovered/Resolved]
  - Uterine cancer [Recovered/Resolved]
  - Rheumatoid arthritis [Not Recovered/Not Resolved]
  - Endometrial cancer recurrent [Recovered/Resolved]

NARRATIVE: CASE EVENT DATE: 2007
